FAERS Safety Report 9857336 (Version 1)
Quarter: 2014Q1

REPORT INFORMATION
  Report Type: Spontaneous
  Country: US (occurrence: US)
  Receive Date: 20140130
  Receipt Date: 20140130
  Transmission Date: 20141002
  Serious: Yes (Other)
  Sender: FDA-Public Use
  Company Number: PHEH2014US002104

PATIENT
  Sex: Female

DRUGS (4)
  1. GILENYA [Suspect]
     Indication: MULTIPLE SCLEROSIS
     Dosage: 0.5 MG, QD
     Route: 048
     Dates: start: 201305
  2. METHYLPHENIDATE [Concomitant]
     Indication: FATIGUE
     Dosage: 5 MG, QD
     Route: 048
     Dates: start: 2013
  3. PROVIGIL//MODAFINIL [Concomitant]
     Indication: FATIGUE
     Dosage: 200 MG, UNK
     Route: 048
     Dates: start: 2013
  4. AMBIEN [Concomitant]
     Indication: INSOMNIA
     Dosage: 10 MG, UNK
     Route: 048

REACTIONS (1)
  - Malignant melanoma [Unknown]
